FAERS Safety Report 5296757-0 (Version None)
Quarter: 2007Q2

REPORT INFORMATION
  Report Type: 
  Country: None (occurrence: None)
  Receive Date: 20070413
  Receipt Date: 20070212
  Transmission Date: 20071010
  Serious: Yes (Other)
  Sender: FDA-Public Use
  Company Number: CH-MERCK-0611CHE00002

PATIENT
  Age: 15 Year
  Sex: Female
  Weight: 47 kg

DRUGS (8)
  1. CANCIDAS [Suspect]
     Indication: BRONCHOPULMONARY ASPERGILLOSIS
     Route: 042
     Dates: start: 20060920
  2. VFEND [Suspect]
     Indication: BRONCHOPULMONARY ASPERGILLOSIS
     Route: 042
     Dates: start: 20060920
  3. ANTRA (OMEPRAZOLE MAGNESIUM) [Concomitant]
     Route: 048
  4. ENOXAPARIN SODIUM [Concomitant]
     Route: 058
  5. INDOMETHACIN [Concomitant]
     Route: 048
  6. NOPIL [Concomitant]
     Route: 048
  7. MERCAPTOPURINE [Concomitant]
     Indication: ACUTE LYMPHOCYTIC LEUKAEMIA
     Route: 041
  8. METHOTREXATE [Concomitant]
     Indication: ACUTE LYMPHOCYTIC LEUKAEMIA
     Route: 042

REACTIONS (5)
  - ARTHRITIS [None]
  - EXTRASKELETAL OSSIFICATION [None]
  - MOBILITY DECREASED [None]
  - POLYSEROSITIS [None]
  - SEPTIC SHOCK [None]
